FAERS Safety Report 7992145-4 (Version None)
Quarter: 2011Q4

REPORT INFORMATION
  Report Type: 
  Country: None (occurrence: None)
  Receive Date: 20111219
  Receipt Date: 20110104
  Transmission Date: 20120403
  Serious: No
  Sender: FDA-Public Use
  Company Number: US-ASTRAZENECA-2010SE56724

PATIENT
  Age: 58 Year
  Sex: Female
  Weight: 73 kg

DRUGS (5)
  1. VITAMIN D [Concomitant]
  2. OTC NATURAL PRODUCTS [Concomitant]
  3. COSMETICS [Concomitant]
  4. CRESTOR [Suspect]
     Indication: HYPERCHOLESTEROLAEMIA
     Route: 048
     Dates: start: 20100815, end: 20101128
  5. OMEGA 3 FATTY ACID [Concomitant]

REACTIONS (5)
  - SKIN CHAPPED [None]
  - DERMATITIS CONTACT [None]
  - SCAB [None]
  - PRURITUS [None]
  - SKIN HAEMORRHAGE [None]
